FAERS Safety Report 24278700 (Version 1)
Quarter: 2024Q3

REPORT INFORMATION
  Report Type: Spontaneous
  Country: FR (occurrence: FR)
  Receive Date: 20240903
  Receipt Date: 20240903
  Transmission Date: 20241017
  Serious: Yes (Hospitalization)
  Sender: TEVA
  Company Number: None

PATIENT
  Age: 81 Year
  Sex: Male
  Weight: 141 kg

DRUGS (4)
  1. LEVOFLOXACIN [Suspect]
     Active Substance: LEVOFLOXACIN
     Indication: Device related infection
     Dosage: 500 MG 1-0-1
     Route: 048
     Dates: start: 20240722, end: 20240731
  2. DAPTOMYCIN [Concomitant]
     Active Substance: DAPTOMYCIN
     Indication: Device related infection
     Dosage: 1000 MG/DAY
     Route: 042
     Dates: start: 20240718, end: 20240721
  3. PIPERACILLIN SODIUM\TAZOBACTAM SODIUM [Concomitant]
     Active Substance: PIPERACILLIN SODIUM\TAZOBACTAM SODIUM
     Indication: Device related infection
     Dosage: 4/0.5 G EVERY 6 HOURS, PIPERACILLIN TAZOBACTAM KABI 4 G/500 MG,
     Route: 042
     Dates: start: 20240718, end: 20240721
  4. CLINDAMYCIN HYDROCHLORIDE [Suspect]
     Active Substance: CLINDAMYCIN HYDROCHLORIDE
     Indication: Device related infection
     Dosage: 600 MG 1-1-1
     Route: 048
     Dates: start: 20240722, end: 20240731

REACTIONS (1)
  - Cutaneous vasculitis [Recovering/Resolving]

NARRATIVE: CASE EVENT DATE: 20240726
